FAERS Safety Report 17521845 (Version 1)
Quarter: 2020Q1

REPORT INFORMATION
  Report Type: Spontaneous
  Country: US (occurrence: US)
  Receive Date: 20200310
  Receipt Date: 20200310
  Transmission Date: 20200409
  Serious: No
  Sender: FDA-Public Use
  Company Number: US-TEVA-2020-US-1195488

PATIENT
  Age: 14 Year
  Sex: Male
  Weight: 63.5 kg

DRUGS (1)
  1. AMPHETAMINE W/DEXTROAMPHETAMINE [Suspect]
     Active Substance: AMPHETAMINE SULFATE\DEXTROAMPHETAMINE
     Indication: ANXIETY
     Route: 065

REACTIONS (2)
  - Disturbance in attention [Unknown]
  - Wrong technique in product usage process [Unknown]
